FAERS Safety Report 12938860 (Version 1)
Quarter: 2016Q4

REPORT INFORMATION
  Report Type: Spontaneous
  Country: AU (occurrence: AU)
  Receive Date: 20161115
  Receipt Date: 20161115
  Transmission Date: 20170207
  Serious: Yes (Other)
  Sender: FDA-Public Use
  Company Number: AU-BAXTER-2016BAX056077

PATIENT
  Age: 11 Day
  Sex: Male

DRUGS (25)
  1. CALCIUM GLUCONATE. [Suspect]
     Active Substance: CALCIUM GLUCONATE
     Dosage: STRENGTH: 0.15MMOL/ML
     Route: 042
     Dates: start: 20161027, end: 20161101
  2. SODIUM ACETATE. [Suspect]
     Active Substance: SODIUM ACETATE
     Dosage: STRENGTH: 2MMOL/ML
     Route: 042
     Dates: start: 20161027, end: 20161101
  3. HEPARIN SODIUM. [Suspect]
     Active Substance: HEPARIN SODIUM
     Indication: PARENTERAL NUTRITION
     Dosage: STRENGTH: 500 UNITS/ML
     Route: 042
     Dates: start: 20161025, end: 20161026
  4. AUSPEN TRACE ELEMENTS [Suspect]
     Active Substance: MINERALS
     Indication: PARENTERAL NUTRITION
     Route: 042
     Dates: start: 20161025, end: 20161026
  5. CALCIUM GLUCONATE. [Suspect]
     Active Substance: CALCIUM GLUCONATE
     Indication: PARENTERAL NUTRITION
     Dosage: STRENGTH: 0.15MMOL/ML
     Route: 042
     Dates: start: 20161025, end: 20161026
  6. POTASSIUM DI-H PHOSPHATE [Suspect]
     Active Substance: POTASSIUM PHOSPHATE, DIBASIC
     Indication: PARENTERAL NUTRITION
     Dosage: STRENGTH: 1MMOL/ML
     Route: 042
     Dates: start: 20161025, end: 20161026
  7. MAGNESIUM CHLORIDE. [Suspect]
     Active Substance: MAGNESIUM CHLORIDE
     Indication: PARENTERAL NUTRITION
     Dosage: STRENGTH: 1MMOL/ML
     Route: 042
     Dates: start: 20161025, end: 20161026
  8. BAXTER 70% ANHYDROUS GLUCOSE 350G_500ML INJECTION BP BAG AHB0293 [Suspect]
     Active Substance: DEXTROSE
     Route: 042
     Dates: start: 20161027, end: 20161101
  9. PRIMENE 10% AMINO ACIDS SOLUTION FOR INJECTION BOTTLE [Suspect]
     Active Substance: AMINO ACIDS
     Indication: PARENTERAL NUTRITION
     Route: 042
     Dates: start: 20161025, end: 20161026
  10. SODIUM ACETATE. [Suspect]
     Active Substance: SODIUM ACETATE
     Indication: PARENTERAL NUTRITION
     Dosage: STRENGTH: 2MMOL/ML
     Route: 042
     Dates: start: 20161025, end: 20161026
  11. MORPHINE [Concomitant]
     Active Substance: MORPHINE
     Indication: PRODUCT USED FOR UNKNOWN INDICATION
     Route: 065
  12. STERILE WATER [Suspect]
     Active Substance: WATER
     Route: 042
     Dates: start: 20161027, end: 20161101
  13. POTASSIUM CHLORIDE. [Suspect]
     Active Substance: POTASSIUM CHLORIDE
     Dosage: STRENGTH: 3MMOL/ML
     Route: 042
     Dates: start: 20161027, end: 20161101
  14. POTASSIUM DI-H PHOSPHATE [Suspect]
     Active Substance: POTASSIUM PHOSPHATE, DIBASIC
     Dosage: STRENGTH: 1MMOL/ML
     Route: 042
     Dates: start: 20161027, end: 20161101
  15. SODIUM CHLORIDE. [Suspect]
     Active Substance: SODIUM CHLORIDE
     Indication: PARENTERAL NUTRITION
     Dosage: STRENGTH: 4MMOL/ML
     Route: 042
     Dates: start: 20161025, end: 20161026
  16. SODIUM CHLORIDE. [Suspect]
     Active Substance: SODIUM CHLORIDE
     Dosage: STRENGTH: 4MMOL/ML
     Route: 042
     Dates: start: 20161027, end: 20161101
  17. POTASSIUM CHLORIDE. [Suspect]
     Active Substance: POTASSIUM CHLORIDE
     Indication: PARENTERAL NUTRITION
     Dosage: STRENGTH: 3MMOL/ML
     Route: 042
     Dates: start: 20161025, end: 20161026
  18. STERILE WATER [Suspect]
     Active Substance: WATER
     Indication: PARENTERAL NUTRITION
     Route: 042
     Dates: start: 20161025, end: 20161026
  19. ACTRAPID [Concomitant]
     Active Substance: INSULIN HUMAN
     Indication: PRODUCT USED FOR UNKNOWN INDICATION
     Route: 065
  20. BAXTER 70% ANHYDROUS GLUCOSE 350G_500ML INJECTION BP BAG AHB0293 [Suspect]
     Active Substance: DEXTROSE
     Indication: PARENTERAL NUTRITION
     Route: 042
     Dates: start: 20161025, end: 20161026
  21. PRIMENE 10% AMINO ACIDS SOLUTION FOR INJECTION BOTTLE [Suspect]
     Active Substance: AMINO ACIDS
     Route: 042
     Dates: start: 20161027, end: 20161101
  22. MAGNESIUM CHLORIDE. [Suspect]
     Active Substance: MAGNESIUM CHLORIDE
     Dosage: STRENGTH: 1MMOL/ML
     Route: 042
     Dates: start: 20161027, end: 20161101
  23. HEPARIN SODIUM. [Suspect]
     Active Substance: HEPARIN SODIUM
     Dosage: STRENGTH: 500 UNITS/ML
     Route: 042
     Dates: start: 20161027, end: 20161101
  24. AUSPEN TRACE ELEMENTS [Suspect]
     Active Substance: MINERALS
     Route: 042
     Dates: start: 20161027, end: 20161101
  25. FAT EMULSION NOS [Concomitant]
     Active Substance: EGG PHOSPHOLIPIDS\SAFFLOWER OIL\SOYBEAN OIL
     Indication: PRODUCT USED FOR UNKNOWN INDICATION
     Route: 065

REACTIONS (1)
  - Blood glucose increased [Recovered/Resolved]

NARRATIVE: CASE EVENT DATE: 20161026
